FAERS Safety Report 14520559 (Version 2)
Quarter: 2018Q4

REPORT INFORMATION
  Report Type: Other
  Country: AU (occurrence: AU)
  Receive Date: 20180212
  Receipt Date: 20181217
  Transmission Date: 20190204
  Serious: Yes (Death, Hospitalization, Other)
  Sender: FDA-Public Use
  Company Number: AU-ACTELION-A-CH2018-167316

PATIENT
  Age: 63 Year
  Sex: Female

DRUGS (5)
  1. BOSENTAN. [Suspect]
     Active Substance: BOSENTAN
     Indication: PULMONARY CAPILLARY HAEMANGIOMATOSIS
     Dosage: 125 MG, BID
     Route: 048
  2. EPOPROSTENOL SODIUM. [Suspect]
     Active Substance: EPOPROSTENOL SODIUM
     Indication: PULMONARY CAPILLARY HAEMANGIOMATOSIS
     Dosage: 4 NG/KG, PER MIN
     Route: 042
  3. SILDENAFIL. [Suspect]
     Active Substance: SILDENAFIL
     Indication: PRODUCT USED FOR UNKNOWN INDICATION
     Dosage: 25 MG, TID
     Route: 048
  4. DOXYCYCLINE. [Suspect]
     Active Substance: DOXYCYCLINE
     Indication: PRODUCT USED FOR UNKNOWN INDICATION
     Dosage: 100 MG, BID
     Route: 048
  5. IMATINIB. [Suspect]
     Active Substance: IMATINIB MESYLATE
     Indication: PRODUCT USED FOR UNKNOWN INDICATION
     Dosage: 100 MG, QD
     Route: 048
     Dates: start: 20101203

REACTIONS (6)
  - Oesophageal motility disorder [Unknown]
  - Right ventricular failure [Fatal]
  - Dyspnoea [Recovering/Resolving]
  - Acute pulmonary oedema [Unknown]
  - Nutritional condition abnormal [Unknown]
  - Fluid overload [Unknown]
